FAERS Safety Report 10444819 (Version 1)
Quarter: 2014Q3

REPORT INFORMATION
  Report Type: Spontaneous
  Country: US (occurrence: None)
  Receive Date: 20140909
  Receipt Date: 20140909
  Transmission Date: 20150326
  Serious: Yes (Hospitalization, Other)
  Sender: FDA-Public Use
  Company Number: None

PATIENT
  Age: 29 Year
  Sex: Male
  Weight: 109.77 kg

DRUGS (1)
  1. LOXAPINE [Suspect]
     Active Substance: LOXAPINE
     Indication: DELUSION OF GRANDEUR

REACTIONS (2)
  - Obsessive-compulsive disorder [None]
  - Fear [None]
